FAERS Safety Report 8906205 (Version 1)
Quarter: 2012Q4

REPORT INFORMATION
  Report Type: Spontaneous
  Country: US (occurrence: None)
  Receive Date: 20121112
  Receipt Date: 20121112
  Transmission Date: 20130627
  Serious: Yes (Life-Threatening, Hospitalization)
  Sender: FDA-Public Use
  Company Number: None

PATIENT
  Age: 17 Year
  Sex: Female
  Weight: 44.91 kg

DRUGS (1)
  1. INFLIXIMAB [Suspect]
     Dates: start: 20120905

REACTIONS (1)
  - Anaphylactic reaction [None]
